FAERS Safety Report 5955466-2 (Version None)
Quarter: 2008Q4

REPORT INFORMATION
  Report Type: 
  Country: None (occurrence: None)
  Receive Date: 20081117
  Receipt Date: 20081106
  Transmission Date: 20090506
  Serious: Yes (Death)
  Sender: FDA-Public Use
  Company Number: JP-ABBOTT-08P-087-0476706-00

PATIENT
  Age: 74 Year
  Sex: Male

DRUGS (8)
  1. LEUPROLIDE ACETATE [Suspect]
     Indication: PROSTATE CANCER STAGE IV
     Route: 058
     Dates: start: 20060721, end: 20080229
  2. BICALUTAMIDE [Concomitant]
     Indication: PROSTATE CANCER STAGE IV
     Route: 048
     Dates: start: 20070622
  3. NIZATIDINE [Concomitant]
     Indication: GASTRITIS
     Route: 048
     Dates: start: 20070124
  4. NITROFURANTOIN [Concomitant]
     Indication: GASTRITIS
     Route: 048
     Dates: start: 20070124
  5. URSODIOL [Concomitant]
     Indication: HEPATIC CIRRHOSIS
     Route: 048
     Dates: end: 20070822
  6. URSODIOL [Concomitant]
     Route: 048
  7. LACTULOSE [Concomitant]
     Indication: HEPATIC CIRRHOSIS
     Route: 048
  8. FALKAMIN [Concomitant]
     Indication: HEPATIC CIRRHOSIS
     Route: 048
     Dates: start: 20071003

REACTIONS (3)
  - CEREBROVASCULAR DISORDER [None]
  - HEPATIC CIRRHOSIS [None]
  - PROSTATIC SPECIFIC ANTIGEN INCREASED [None]
